FAERS Safety Report 8505832-6 (Version None)
Quarter: 2012Q3

REPORT INFORMATION
  Report Type: 
  Country: None (occurrence: None)
  Receive Date: 20120703
  Receipt Date: 20120629
  Transmission Date: 20120928
  Serious: Yes (Death, Hospitalization)
  Sender: FDA-Public Use
  Company Number: 2012SP034548

PATIENT
  Age: 63 Year
  Sex: Female
  Weight: 63 kg

DRUGS (5)
  1. XANAX [Concomitant]
  2. VICTRELIS [Suspect]
     Indication: HEPATITIS C
     Dosage: 800 MG;TID;
     Dates: start: 20120209, end: 20120411
  3. ACETAMINOPHEN [Concomitant]
  4. VIRAFERONPEG [Suspect]
     Indication: HEPATITIS C
     Dosage: 80 MCG;QW;
     Dates: start: 20120112, end: 20120411
  5. REBETOL [Suspect]
     Indication: HEPATITIS C
     Dosage: 800 MG;QD;
     Dates: start: 20120112, end: 20120412

REACTIONS (15)
  - DIARRHOEA [None]
  - CYANOSIS [None]
  - PLEURAL EFFUSION [None]
  - GENERAL PHYSICAL HEALTH DETERIORATION [None]
  - HAEMOPTYSIS [None]
  - PETECHIAE [None]
  - INFLUENZA LIKE ILLNESS [None]
  - ABDOMINAL PAIN [None]
  - MALAISE [None]
  - CARDIO-RESPIRATORY ARREST [None]
  - BLOOD PRESSURE DECREASED [None]
  - DYSPNOEA [None]
  - RESPIRATORY DISORDER [None]
  - HEART RATE INCREASED [None]
  - LUNG INFILTRATION [None]
